FAERS Safety Report 7784039-4 (Version None)
Quarter: 2011Q3

REPORT INFORMATION
  Report Type: 
  Country: None (occurrence: None)
  Receive Date: 20110926
  Receipt Date: 20110912
  Transmission Date: 20111222
  Serious: Yes (Other)
  Sender: FDA-Public Use
  Company Number: 2011AP002037

PATIENT
  Age: 51 Year
  Sex: Male

DRUGS (10)
  1. FOLIC ACID [Concomitant]
  2. EPILIM CHRONO /00228501/ (VALPROATE SODIUM) [Concomitant]
  3. PHENYTOIN SODIUM [Concomitant]
  4. OMEPRAZOLE [Suspect]
     Indication: THROMBOSIS
     Dosage: 40 MG;PO;BID
     Route: 048
  5. GAVISCON ADVANCE (GAVISCON ADVANCE) [Concomitant]
  6. NARATRIPTAN (NARATRIPTAN) [Concomitant]
  7. FERROUS SULFATE TAB [Concomitant]
  8. LEVETIRACETAM [Concomitant]
  9. PYRIDOXINE (PYRIDOXINE) [Concomitant]
  10. VITAMIN B COMPLEX /00003501/ (B-KOMPLEX) [Concomitant]

REACTIONS (2)
  - INSOMNIA [None]
  - EPILEPSY [None]
